FAERS Safety Report 12509968 (Version 2)
Quarter: 2016Q4

REPORT INFORMATION
  Report Type: Spontaneous
  Country: DK (occurrence: FR)
  Receive Date: 20160629
  Receipt Date: 20161027
  Transmission Date: 20170207
  Serious: Yes (Other)
  Sender: FDA-Public Use
  Company Number: FR-FRI-1000085623

PATIENT
  Age: 25 Year
  Sex: Female

DRUGS (6)
  1. THERALENE [Suspect]
     Active Substance: TRIMEPRAZINE
     Indication: ANXIETY
     Dosage: UNK
     Route: 048
     Dates: start: 2013
  2. IMOVANE [Suspect]
     Active Substance: ZOPICLONE
     Indication: ANXIETY
     Dosage: 1 DF, QD
     Route: 048
     Dates: start: 2013
  3. ESCITALOPRAM OXALATE - BP [Suspect]
     Active Substance: ESCITALOPRAM OXALATE
     Indication: ANXIETY
     Dosage: UNK
     Route: 048
     Dates: start: 2013, end: 20160614
  4. LAMICTAL [Suspect]
     Active Substance: LAMOTRIGINE
     Indication: ANXIETY
     Dosage: 200 MG, UNK
     Route: 048
     Dates: start: 20141107, end: 20160614
  5. XANAX [Suspect]
     Active Substance: ALPRAZOLAM
     Indication: ANXIETY
     Dosage: UNK
     Route: 048
     Dates: start: 2013
  6. OPTILOVA [Concomitant]
     Active Substance: ETHINYL ESTRADIOL\LEVONORGESTREL
     Indication: PRODUCT USED FOR UNKNOWN INDICATION
     Dosage: UNK
     Route: 065

REACTIONS (1)
  - Obsessive-compulsive disorder [Not Recovered/Not Resolved]

NARRATIVE: CASE EVENT DATE: 201510
